FAERS Safety Report 7602527-8 (Version None)
Quarter: 2011Q3

REPORT INFORMATION
  Report Type: 
  Country: None (occurrence: None)
  Receive Date: 20110701
  Receipt Date: 20110616
  Transmission Date: 20111222
  Serious: Yes (Death, Hospitalization, Other)
  Sender: FDA-Public Use
  Company Number: US-2011-10405

PATIENT
  Age: 10 Year
  Sex: Female

DRUGS (8)
  1. THIOTEPA [Concomitant]
  2. CASPOFUNGIN (CASPOFUNGIN ACETATE) [Concomitant]
  3. MELPHALAN HYDROCHLORIDE [Suspect]
     Indication: STEM CELL TRANSPLANT
     Dosage: 50 MG/M2, DAILY DOSE
  4. PENTAMIDINE (PENTAMIDINE ISETHIONATE) [Concomitant]
  5. AMIFOSTINE (AMIFOSTINE) [Concomitant]
  6. ACYCLOVIR [Concomitant]
  7. BUSULFEX [Suspect]
     Indication: STEM CELL TRANSPLANT
     Dosage: 3.2 MG/KG, DAILY, INTRAVENOUS
     Route: 042
  8. NYSTATIN [Concomitant]

REACTIONS (19)
  - PYREXIA [None]
  - PYURIA [None]
  - THROMBOTIC MICROANGIOPATHY [None]
  - CONVULSION [None]
  - CYTOMEGALOVIRUS VIRAEMIA [None]
  - POLYOMAVIRUS-ASSOCIATED NEPHROPATHY [None]
  - PNEUMONIA KLEBSIELLA [None]
  - EFFUSION [None]
  - HYPOGAMMAGLOBULINAEMIA [None]
  - THROMBOCYTOPENIA [None]
  - ESCHERICHIA SEPSIS [None]
  - GENERAL PHYSICAL HEALTH DETERIORATION [None]
  - NEUTROPENIA [None]
  - CONDITION AGGRAVATED [None]
  - APNOEA [None]
  - HAEMODIALYSIS [None]
  - URINARY TRACT INFECTION ENTEROCOCCAL [None]
  - LYMPHOPENIA [None]
  - RENAL FAILURE [None]
